FAERS Safety Report 21992692 (Version 2)
Quarter: 2023Q1

REPORT INFORMATION
  Report Type: Spontaneous
  Country: RU (occurrence: RU)
  Receive Date: 20230215
  Receipt Date: 20230321
  Transmission Date: 20230418
  Serious: Yes (Life-Threatening)
  Sender: FDA-Public Use
  Company Number: RU-JNJFOC-20230226217

PATIENT
  Sex: Male
  Weight: 53 kg

DRUGS (17)
  1. SIRTURO [Suspect]
     Active Substance: BEDAQUILINE FUMARATE
     Indication: Tuberculosis
     Dosage: 0.2 3TW PER OS
     Route: 048
     Dates: start: 20221125, end: 20230206
  2. LEVOFLOXACIN [Suspect]
     Active Substance: LEVOFLOXACIN
     Indication: Tuberculosis
     Dosage: 0.1 DAILY PER OS
     Route: 048
     Dates: start: 20221026, end: 20230206
  3. LINEZOLID [Suspect]
     Active Substance: LINEZOLID
     Indication: Tuberculosis
     Dosage: 0.6 DAILY PER OS
     Route: 048
     Dates: start: 20221026, end: 20230206
  4. CLOFAZIMINE [Suspect]
     Active Substance: CLOFAZIMINE
     Indication: Tuberculosis
     Dosage: 0.1 DAILY PER OS
     Route: 048
     Dates: start: 20221026, end: 20230206
  5. AMIODARONE [Concomitant]
     Active Substance: AMIODARONE
     Indication: Product used for unknown indication
     Route: 042
     Dates: end: 20230206
  6. ART [DIACEREIN] [Concomitant]
     Indication: Product used for unknown indication
     Route: 065
     Dates: start: 20221026, end: 20230206
  7. TENOFOVIR [Concomitant]
     Active Substance: TENOFOVIR
     Indication: Product used for unknown indication
     Dosage: 0.3 PER OS
     Route: 065
     Dates: start: 20221026, end: 20230206
  8. LAMIVUDINE [Concomitant]
     Active Substance: LAMIVUDINE
     Indication: Product used for unknown indication
     Dosage: 0, 15 ON 2 TABL PER OS
     Route: 065
     Dates: start: 20221026, end: 20230206
  9. DOLUTEGRAVIR [Concomitant]
     Active Substance: DOLUTEGRAVIR
     Indication: Product used for unknown indication
     Dosage: 0.05 TWICE A DAY PER OS;
     Route: 065
     Dates: start: 20221026, end: 20230206
  10. COTRIMOXAZOLE [Concomitant]
     Active Substance: SULFAMETHOXAZOLE\TRIMETHOPRIM
     Indication: Product used for unknown indication
     Dosage: 0.48 BY 2 TABL X 3P/ WEEK PER OS
     Route: 065
     Dates: start: 20221125, end: 20230206
  11. FERROUS SULFATE [Concomitant]
     Active Substance: FERROUS SULFATE
     Indication: Product used for unknown indication
     Dosage: 0.1 TWICE A DAY PER OS
     Route: 065
     Dates: start: 20221125, end: 20230206
  12. FOLIC ACID [Concomitant]
     Active Substance: FOLIC ACID
     Indication: Product used for unknown indication
     Dosage: 0.001 THREE TIMES A DAY PER OS
     Route: 065
     Dates: end: 20230206
  13. CETIRIZINE [Concomitant]
     Active Substance: CETIRIZINE HYDROCHLORIDE
     Indication: Product used for unknown indication
     Dosage: 0.01 PER DAY PER OS
     Route: 065
     Dates: start: 20221125, end: 20230206
  14. AMOXICILLIN\CLAVULANATE POTASSIUM [Concomitant]
     Active Substance: AMOXICILLIN\CLAVULANATE POTASSIUM
     Indication: Product used for unknown indication
     Route: 065
  15. MOXIFLOXACIN [Concomitant]
     Active Substance: MOXIFLOXACIN
     Indication: Product used for unknown indication
     Route: 065
  16. AMIODARONE [Concomitant]
     Active Substance: AMIODARONE
     Indication: Product used for unknown indication
     Route: 042
  17. ENALAPRIL [Concomitant]
     Active Substance: ENALAPRIL
     Indication: Hypertension
     Route: 065

REACTIONS (1)
  - Arrhythmia [Unknown]

NARRATIVE: CASE EVENT DATE: 20230206
